FAERS Safety Report 8460308-X (Version None)
Quarter: 2012Q2

REPORT INFORMATION
  Report Type: 
  Country: None (occurrence: None)
  Receive Date: 20120622
  Receipt Date: 20120613
  Transmission Date: 20120825
  Serious: Yes (Hospitalization)
  Sender: FDA-Public Use
  Company Number: US-ACTELION-A-NJ2012-65789

PATIENT

DRUGS (3)
  1. TRACLEER [Suspect]
     Indication: PULMONARY ARTERIAL HYPERTENSION
     Dosage: UNK
     Route: 048
     Dates: start: 20110607
  2. COUMADIN [Concomitant]
  3. SILDENAFIL [Concomitant]

REACTIONS (6)
  - CARDIAC FAILURE [None]
  - OEDEMA PERIPHERAL [None]
  - HAEMOGLOBIN DECREASED [None]
  - TACHYCARDIA [None]
  - CARDIAC ABLATION [None]
  - HEART RATE INCREASED [None]
